FAERS Safety Report 19662743 (Version 1)
Quarter: 2021Q3

REPORT INFORMATION
  Report Type: Spontaneous
  Country: NL (occurrence: NL)
  Receive Date: 20210805
  Receipt Date: 20210805
  Transmission Date: 20211014
  Serious: Yes (Life-Threatening)
  Sender: FDA-Public Use
  Company Number: NL-FOUNDATIONCONSUMERHC-2021-NL-000025

PATIENT
  Age: 33 Year
  Sex: Female
  Weight: 75 kg

DRUGS (3)
  1. COMIRNATY [Suspect]
     Active Substance: TOZINAMERAN
     Indication: COVID-19 IMMUNISATION
     Dates: start: 20210624
  2. LEVONORGESTREL (UNSPECIFIED) [Suspect]
     Active Substance: LEVONORGESTREL
     Indication: CONTRACEPTION
     Dosage: 1X PER DAG 1 STUK
     Route: 065
     Dates: start: 2010, end: 20210708
  3. METHYLFENIDAAT TABLET MGA 36MG / CONCERTA TABLET MVA 36MG [Concomitant]
     Dosage: TABLET MET GEREGULEERDE AFGIFTE, 36 MG (MILLIGRAM)

REACTIONS (1)
  - Pulmonary embolism [Recovering/Resolving]

NARRATIVE: CASE EVENT DATE: 20210707
